FAERS Safety Report 19189581 (Version 1)
Quarter: 2021Q2

REPORT INFORMATION
  Report Type: Spontaneous
  Country: US (occurrence: US)
  Receive Date: 20210428
  Receipt Date: 20210428
  Transmission Date: 20210717
  Serious: Yes (Other)
  Sender: FDA-Public Use
  Company Number: US-DRREDDYS-USA/USA/21/0134930

PATIENT

DRUGS (1)
  1. CHLORPROMAZINE. [Suspect]
     Active Substance: CHLORPROMAZINE
     Indication: WOLFF-PARKINSON-WHITE SYNDROME

REACTIONS (2)
  - Electrocardiogram QT prolonged [Unknown]
  - Supraventricular tachycardia [Unknown]
